FAERS Safety Report 18004496 (Version 1)
Quarter: 2020Q3

REPORT INFORMATION
  Report Type: Spontaneous
  Country: US (occurrence: US)
  Receive Date: 20200709
  Receipt Date: 20200709
  Transmission Date: 20201103
  Serious: Yes (Hospitalization)
  Sender: FDA-Public Use
  Company Number: US-PTC THERAPEUTICS, INC.-US-2020PTC000348

PATIENT

DRUGS (1)
  1. EMFLAZA [Suspect]
     Active Substance: DEFLAZACORT
     Indication: MUSCULAR DYSTROPHY
     Dosage: 30 MG, QD
     Route: 048

REACTIONS (16)
  - Cardiac disorder [Unknown]
  - Unresponsive to stimuli [Unknown]
  - Renal disorder [Unknown]
  - Pain [Unknown]
  - Hypersomnia [Unknown]
  - Asthenia [Unknown]
  - Anger [Unknown]
  - Fatigue [Unknown]
  - Irritability [Unknown]
  - Headache [Unknown]
  - Constipation [Unknown]
  - Abdominal pain [Unknown]
  - Dyspnoea [Unknown]
  - Dizziness [Unknown]
  - Gallbladder disorder [Unknown]
  - White blood cell count increased [Unknown]

NARRATIVE: CASE EVENT DATE: 2020
